FAERS Safety Report 9447319 (Version 2)
Quarter: 2013Q4

REPORT INFORMATION
  Report Type: Spontaneous
  Country: US (occurrence: US)
  Receive Date: 20130808
  Receipt Date: 20131118
  Transmission Date: 20140711
  Serious: Yes (Hospitalization)
  Sender: FDA-Public Use
  Company Number: US-BIOGENIDEC-2013BI071599

PATIENT
  Age: 35 Year
  Sex: Male

DRUGS (1)
  1. AVONEX [Suspect]
     Indication: RELAPSING-REMITTING MULTIPLE SCLEROSIS
     Route: 030
     Dates: start: 20110316

REACTIONS (8)
  - Mobility decreased [Recovered/Resolved]
  - Fall [Recovered/Resolved]
  - Therapeutic aspiration [Recovered/Resolved]
  - Multiple sclerosis relapse [Unknown]
  - Muscular weakness [Not Recovered/Not Resolved]
  - Memory impairment [Not Recovered/Not Resolved]
  - Gait disturbance [Unknown]
  - Anxiety [Not Recovered/Not Resolved]
